FAERS Safety Report 18679288 (Version 1)
Quarter: 2020Q4

REPORT INFORMATION
  Report Type: Spontaneous
  Country: IT (occurrence: IT)
  Receive Date: 20201230
  Receipt Date: 20201230
  Transmission Date: 20210114
  Serious: Yes (Other)
  Sender: FDA-Public Use
  Company Number: IT-ADIENNEP-2020AD000652

PATIENT
  Age: 9 Year

DRUGS (4)
  1. THIOTEPA. [Suspect]
     Active Substance: THIOTEPA
     Indication: ALLOGENIC STEM CELL TRANSPLANTATION
  2. ATG [Suspect]
     Active Substance: LAPINE T-LYMPHOCYTE IMMUNE GLOBULIN
     Indication: ALLOGENIC STEM CELL TRANSPLANTATION
  3. CYCLOPHOSFAMIDE [Suspect]
     Active Substance: CYCLOPHOSPHAMIDE
     Indication: ALLOGENIC STEM CELL TRANSPLANTATION
  4. FLUDARABIN [Suspect]
     Active Substance: FLUDARABINE PHOSPHATE
     Indication: ALLOGENIC STEM CELL TRANSPLANTATION

REACTIONS (11)
  - Haematoma [Unknown]
  - Haematemesis [Unknown]
  - Haemorrhage [Unknown]
  - Blood bilirubin increased [Not Recovered/Not Resolved]
  - Graft versus host disease in liver [Not Recovered/Not Resolved]
  - Cytomegalovirus infection reactivation [Unknown]
  - Thrombotic microangiopathy [Unknown]
  - Polyomavirus test positive [Unknown]
  - Petechiae [Unknown]
  - Hepatic enzyme increased [Not Recovered/Not Resolved]
  - Viral haemorrhagic cystitis [Unknown]
